FAERS Safety Report 8300249-1 (Version None)
Quarter: 2012Q2

REPORT INFORMATION
  Report Type: 
  Country: None (occurrence: None)
  Receive Date: 20120420
  Receipt Date: 20120409
  Transmission Date: 20120825
  Serious: Yes (Hospitalization, Disabling, Other)
  Sender: FDA-Public Use
  Company Number: JP-JNJFOC-20111009744

PATIENT
  Age: 80 Year
  Sex: Female
  Weight: 100 kg

DRUGS (3)
  1. RISPERDAL [Suspect]
     Indication: SCHIZOPHRENIA
     Route: 048
  2. RISPERDAL [Suspect]
     Route: 048
     Dates: start: 20110721
  3. LEVOMEPROMAZINE MALEATE [Concomitant]
     Indication: INSOMNIA
     Route: 048
     Dates: start: 20110721

REACTIONS (2)
  - CONFUSIONAL STATE [None]
  - RENAL IMPAIRMENT [None]
